FAERS Safety Report 8462634-7 (Version None)
Quarter: 2012Q2

REPORT INFORMATION
  Report Type: 
  Country: None (occurrence: None)
  Receive Date: 20120625
  Receipt Date: 20120613
  Transmission Date: 20120825
  Serious: Yes (Hospitalization)
  Sender: FDA-Public Use
  Company Number: JP-VERTEX PHARMACEUTICALS INC.-AE-2012-008972

PATIENT
  Age: 60 Year
  Sex: Male

DRUGS (7)
  1. TELAVIC (TELAPREVIR) [Suspect]
     Indication: HEPATITIS C
     Route: 048
     Dates: start: 20120427, end: 20120531
  2. PEGINTERFERON ALFA-2B [Concomitant]
     Route: 058
     Dates: start: 20120427
  3. RIBAVIRIN [Concomitant]
     Route: 048
     Dates: start: 20120427, end: 20120531
  4. FEBURIC [Concomitant]
     Route: 048
     Dates: start: 20120502
  5. TELAVIC (TELAPREVIR) [Suspect]
     Route: 048
     Dates: start: 20120601
  6. RIBAVIRIN [Concomitant]
     Route: 048
     Dates: start: 20120601
  7. ALLOPURINOL [Concomitant]
     Route: 048
     Dates: end: 20120501

REACTIONS (1)
  - DECREASED APPETITE [None]
